FAERS Safety Report 21724921 (Version 1)
Quarter: 2022Q4

REPORT INFORMATION
  Report Type: Other
  Country: US (occurrence: US)
  Receive Date: 20221214
  Receipt Date: 20221214
  Transmission Date: 20230113
  Serious: Yes (Hospitalization)
  Sender: FDA-Public Use
  Company Number: US-GBT-017664

PATIENT
  Age: 18 Year
  Sex: Male

DRUGS (10)
  1. OXBRYTA [Suspect]
     Active Substance: VOXELOTOR
     Indication: Sickle cell disease
     Route: 048
     Dates: start: 2021
  2. TYLENOL [Concomitant]
     Active Substance: ACETAMINOPHEN
     Indication: Product used for unknown indication
     Dosage: TIME INTERVAL: AS NECESSARY
  3. EXJADE [Concomitant]
     Active Substance: DEFERASIROX
     Indication: Blood iron increased
  4. VITAMIN D [Concomitant]
     Active Substance: VITAMIN D NOS
     Indication: Pain
  5. VITAMINS [Concomitant]
     Active Substance: VITAMINS
     Indication: Pain
  6. IBUPROFEN [Concomitant]
     Active Substance: IBUPROFEN
     Indication: Product used for unknown indication
     Dosage: TIME INTERVAL: AS NECESSARY
  7. MIRTAZAPINE [Concomitant]
     Active Substance: MIRTAZAPINE
     Indication: Sleep disorder
  8. ENDARI [Concomitant]
     Active Substance: GLUTAMINE
     Indication: Pain
  9. MORPHINE [Concomitant]
     Active Substance: MORPHINE
     Indication: Pain
  10. METHADONE [Concomitant]
     Active Substance: METHADONE HYDROCHLORIDE
     Indication: Pain

REACTIONS (3)
  - Sickle cell anaemia with crisis [Unknown]
  - Pyrexia [Unknown]
  - Drug ineffective [Not Recovered/Not Resolved]

NARRATIVE: CASE EVENT DATE: 20221001
